FAERS Safety Report 7522986-9 (Version None)
Quarter: 2011Q2

REPORT INFORMATION
  Report Type: 
  Country: None (occurrence: None)
  Receive Date: 20110603
  Receipt Date: 20110601
  Transmission Date: 20111010
  Serious: Yes (Other)
  Sender: FDA-Public Use
  Company Number: JP-PFIZER INC-2011117891

PATIENT
  Sex: Female

DRUGS (1)
  1. CABERGOLINE [Suspect]
     Indication: PARKINSON'S DISEASE
     Dosage: UNK

REACTIONS (1)
  - TRICUSPID VALVE INCOMPETENCE [None]
